FAERS Safety Report 5991049-6 (Version None)
Quarter: 2008Q4

REPORT INFORMATION
  Report Type: 
  Country: None (occurrence: None)
  Receive Date: 20081211
  Receipt Date: 20081202
  Transmission Date: 20090506
  Serious: Yes (Hospitalization)
  Sender: FDA-Public Use
  Company Number: DE-BAXTER-2008BH013299

PATIENT
  Age: 58 Year
  Sex: Female
  Weight: 63 kg

DRUGS (9)
  1. CYCLOPHOSPHAMIDE [Suspect]
     Indication: BREAST CANCER
     Route: 065
     Dates: start: 20070928, end: 20070928
  2. EPIRUBICIN [Suspect]
     Indication: BREAST CANCER
     Route: 065
     Dates: start: 20070928, end: 20070928
  3. PRAMIPEXOLE DIHYDROCHLORIDE [Concomitant]
     Dates: start: 20060101
  4. MESNA [Concomitant]
     Dates: start: 20070928, end: 20081109
  5. DEXAMETHASONE [Concomitant]
     Dates: start: 20070927, end: 20080208
  6. VITAMIN D3 [Concomitant]
     Dates: start: 20060101
  7. ALENDRONATE SODIUM [Concomitant]
     Dates: start: 20060101
  8. EPOETIN BETA [Concomitant]
     Dates: start: 20070928, end: 20080117
  9. IRON SULFATETHIAMIN COMPOUND TAB [Concomitant]
     Dates: start: 20070928, end: 20080229

REACTIONS (6)
  - CONFUSIONAL STATE [None]
  - DIARRHOEA [None]
  - ELECTROLYTE IMBALANCE [None]
  - MYOCLONUS [None]
  - NAUSEA [None]
  - VOMITING [None]
